FAERS Safety Report 16097138 (Version 3)
Quarter: 2019Q2

REPORT INFORMATION
  Report Type: Spontaneous
  Country: IT (occurrence: IT)
  Receive Date: 20190320
  Receipt Date: 20190402
  Transmission Date: 20190711
  Serious: Yes (Death, Life-Threatening, Hospitalization, Other)
  Sender: FDA-Public Use
  Company Number: IT-PFIZER INC-2019119463

PATIENT
  Age: 72 Year
  Sex: Male

DRUGS (2)
  1. PEMETREXED. [Suspect]
     Active Substance: PEMETREXED
     Indication: EPITHELIOID MESOTHELIOMA
     Dosage: UNK, FOUR CYCLES
     Dates: start: 2016, end: 201611
  2. CARBOPLATIN. [Suspect]
     Active Substance: CARBOPLATIN
     Indication: EPITHELIOID MESOTHELIOMA
     Dosage: UNK, FOUR CYCLES
     Dates: start: 2016, end: 201611

REACTIONS (7)
  - Interstitial lung disease [Fatal]
  - Atrial fibrillation [Unknown]
  - Radiation pneumonitis [Fatal]
  - Respiratory failure [Not Recovered/Not Resolved]
  - Oedema peripheral [Unknown]
  - Cardiac failure [Unknown]
  - Pulmonary toxicity [Not Recovered/Not Resolved]

NARRATIVE: CASE EVENT DATE: 201704
